FAERS Safety Report 9478127 (Version 2)
Quarter: 2013Q3

REPORT INFORMATION
  Report Type: Spontaneous
  Country: US (occurrence: None)
  Receive Date: 20130821
  Receipt Date: 20130930
  Transmission Date: 20140515
  Serious: Yes (Death)
  Sender: FDA-Public Use
  Company Number: LMI-2013-00324

PATIENT
  Age: 65 Year
  Sex: Female

DRUGS (16)
  1. DEFINITY [Suspect]
     Indication: ECHOCARDIOGRAM
     Dates: start: 20130803, end: 20130803
  2. ALBUTEROL (SALBUTAMOL) [Concomitant]
  3. ASPIRIN (ACETYLSALICYLIC ACID) [Concomitant]
  4. CORTROSYN (TETRACOSACTIDE) [Concomitant]
  5. FERRUS SULPHATE (FERROUS SULFATE) [Concomitant]
  6. HUMULIN (INSULIN HUMAM, INSULIN HUMAN INJECTION, SOPHANE) [Concomitant]
  7. LOVENOX (ENOXAPARIN SODIUM) [Concomitant]
  8. MAG-ALL (MAGNESIUM HYDROXIDE, SIMETICONE, ALUMINIUM HYDROXIDE) [Concomitant]
  9. MAGNESIUM OXIDE (MAGNESIUM OXIDE) [Concomitant]
  10. MEROPENEM (MEROPENEM) [Concomitant]
  11. MULTIVITAMINS (ERGOCALCIFEROL, ASCORBIC ACID, FOLIC ACID, THIAMINE HYROCHLORIDE, RETINOL, RIBOFLAVIN, NICOTINAMIDE, PANTHENOL) [Concomitant]
  12. PROLASTIL (COSMETICS) [Concomitant]
  13. PROCRIT (ERYTHROPOIETIN) [Concomitant]
  14. PROTONIX (PANTOPRAZOLE SODIUM SESQUITHYDRATE) [Concomitant]
  15. ACETAMINOPHEN CODEINE (CODEINE, PARACETAMOL) [Concomitant]
  16. MORPHINE (MORPHINE) [Concomitant]

REACTIONS (2)
  - Death [None]
  - Anaphylactic reaction [None]
